FAERS Safety Report 9767452 (Version 2)
Quarter: 2013Q3

REPORT INFORMATION
  Report Type: Spontaneous
  Country: US (occurrence: None)
  Receive Date: 20130826
  Receipt Date: 20130830
  Transmission Date: 20140515
  Serious: Yes (Death, Other)
  Sender: FDA-Public Use
  Company Number: ADR-2010-9331

PATIENT
  Age: 51 Year
  Sex: Female

DRUGS (5)
  1. BACLOFEN INTRATHECAL [Suspect]
     Indication: CANCER PAIN
  2. DILAUDID INTRATHECAL [Suspect]
     Indication: CANCER PAIN
  3. CLONIDINE INTRATHECAL [Suspect]
  4. DROPERIDOL INTRATHECAL [Suspect]
  5. BUPIVACAINE INTRATHECAL [Suspect]

REACTIONS (3)
  - Device breakage [None]
  - Therapeutic product ineffective [None]
  - Pain [None]
